FAERS Safety Report 14975380 (Version 3)
Quarter: 2018Q3

REPORT INFORMATION
  Report Type: Report from Study
  Country: FR (occurrence: FR)
  Receive Date: 20180605
  Receipt Date: 20180904
  Transmission Date: 20181010
  Serious: Yes (Hospitalization)
  Sender: FDA-Public Use
  Company Number: FR-BAYER-2017-235547

PATIENT
  Age: 81 Year
  Sex: Male
  Weight: 89 kg

DRUGS (22)
  1. ACETYLSALICYLIC ACID({=100 MG) [Suspect]
     Active Substance: ASPIRIN
     Indication: THROMBOSIS PROPHYLAXIS
     Dosage: 100 MG, QD
     Route: 048
     Dates: start: 20170911, end: 20171026
  2. KARDEGIC [Concomitant]
     Active Substance: ASPIRIN DL-LYSINE
     Dosage: 75 MG, QD
     Route: 048
     Dates: start: 201710
  3. LANTUS [Concomitant]
     Active Substance: INSULIN GLARGINE
     Indication: DIABETES MELLITUS
     Dosage: 1 DOSE, QD
     Route: 058
  4. RIFAMPICIN [Concomitant]
     Active Substance: RIFAMPIN
     Dosage: 1500, QD
     Route: 048
     Dates: start: 20171121, end: 20171128
  5. LASILIX [Concomitant]
     Active Substance: FUROSEMIDE
     Dosage: 40 MG, QD
     Route: 048
     Dates: start: 20170905, end: 20170907
  6. ORBENINE [Concomitant]
     Active Substance: CLOXACILLIN SODIUM
     Dosage: UNK, QD
     Route: 048
     Dates: start: 20171128, end: 20171207
  7. CIPROFLOXACIN. [Concomitant]
     Active Substance: CIPROFLOXACIN
     Dosage: 500 MG, BID
     Route: 048
     Dates: start: 20171213, end: 20171218
  8. RIVAROXABAN [Suspect]
     Active Substance: RIVAROXABAN
     Indication: AORTIC VALVE REPLACEMENT
  9. ACETYLSALICYLIC ACID({=100 MG) [Suspect]
     Active Substance: ASPIRIN
     Indication: AORTIC VALVE REPLACEMENT
  10. KARDEGIC [Concomitant]
     Active Substance: ASPIRIN DL-LYSINE
     Dosage: 160 MG, QD
     Route: 048
     Dates: end: 20170905
  11. TAHOR [Concomitant]
     Active Substance: ATORVASTATIN CALCIUM
     Dosage: 20 MG, QD
     Route: 048
  12. TEMERIT [Concomitant]
     Active Substance: NEBIVOLOL
     Dosage: 2.5 MG, QD
     Route: 048
     Dates: start: 20180116
  13. SERETIDE [Concomitant]
     Active Substance: FLUTICASONE PROPIONATE\SALMETEROL XINAFOATE
     Indication: CHRONIC OBSTRUCTIVE PULMONARY DISEASE
     Dosage: 1 INHALATION, QD
     Route: 055
  14. TAVANIC [Concomitant]
     Active Substance: LEVOFLOXACIN
     Dosage: 500 MG, BID
     Route: 048
     Dates: start: 20171121, end: 20171128
  15. RIVAROXABAN [Suspect]
     Active Substance: RIVAROXABAN
     Indication: THROMBOSIS PROPHYLAXIS
     Dosage: 10 MG, QD
     Dates: start: 20170911, end: 20171026
  16. ALPRAZOLAM. [Concomitant]
     Active Substance: ALPRAZOLAM
     Dosage: 0.25 MG, BID
     Route: 048
  17. PANTOPRAZOLE [Concomitant]
     Active Substance: PANTOPRAZOLE
     Dosage: 40 MG, BID
     Route: 048
     Dates: start: 20180115
  18. TEMERIT [Concomitant]
     Active Substance: NEBIVOLOL
     Dosage: 5 MG, QD
     Route: 048
     Dates: end: 20180115
  19. MAPROTILINE [Concomitant]
     Active Substance: MAPROTILINE
     Dosage: 50 MG, QD
     Route: 048
  20. RIFAMPICIN [Concomitant]
     Active Substance: RIFAMPIN
     Dosage: 600 MG, BID
     Route: 048
     Dates: start: 20171213, end: 20171218
  21. KARDEGIC [Concomitant]
     Active Substance: ASPIRIN DL-LYSINE
     Dosage: 75 MG, QD
     Route: 048
     Dates: start: 20170906, end: 20170910
  22. LOVENOX [Concomitant]
     Active Substance: ENOXAPARIN SODIUM
     Dosage: 4000 UI, QD
     Route: 058
     Dates: start: 20180115

REACTIONS (4)
  - Sepsis [Recovered/Resolved]
  - Hip fracture [Recovered/Resolved]
  - Hip arthroplasty [Recovered/Resolved with Sequelae]
  - Ostectomy [Recovered/Resolved with Sequelae]

NARRATIVE: CASE EVENT DATE: 20171026
